FAERS Safety Report 13977490 (Version 1)
Quarter: 2017Q3

REPORT INFORMATION
  Report Type: Spontaneous
  Country: US (occurrence: US)
  Receive Date: 20170915
  Receipt Date: 20170915
  Transmission Date: 20171128
  Serious: Yes (Hospitalization, Disabling, Other)
  Sender: FDA-Public Use
  Company Number: None

PATIENT
  Sex: Male
  Weight: 103.5 kg

DRUGS (3)
  1. ABILIFY [Concomitant]
     Active Substance: ARIPIPRAZOLE
  2. INVEGA [Suspect]
     Active Substance: PALIPERIDONE
     Indication: SCHIZOAFFECTIVE DISORDER BIPOLAR TYPE
     Dosage: QUANTITY:1 INJECTION(S);OTHER FREQUENCY:1-3 MONTHS;?
     Route: 058
  3. (SUSTENA) [Concomitant]

REACTIONS (12)
  - Acne [None]
  - Suicidal ideation [None]
  - Depressed mood [None]
  - Mood altered [None]
  - Vision blurred [None]
  - Lymphadenopathy [None]
  - Visual field defect [None]
  - Blister [None]
  - Hair growth abnormal [None]
  - Speech disorder [None]
  - Limb discomfort [None]
  - Cognitive disorder [None]

NARRATIVE: CASE EVENT DATE: 20090417
